FAERS Safety Report 11411473 (Version 1)
Quarter: 2015Q3

REPORT INFORMATION
  Report Type: Spontaneous
  Country: US (occurrence: US)
  Receive Date: 20150821
  Receipt Date: 20150821
  Transmission Date: 20151125
  Serious: No
  Sender: FDA-Public Use
  Company Number: US-ELI_LILLY_AND_COMPANY-US201008000645

PATIENT
  Age: 64 Year
  Sex: Female

DRUGS (4)
  1. HUMULIN 70/30 [Suspect]
     Active Substance: INSULIN HUMAN
     Dosage: 10 U, EACH MORNING
  2. HUMULIN 70/30 [Suspect]
     Active Substance: INSULIN HUMAN
     Indication: DIABETES MELLITUS
     Dosage: 15 U, EACH EVENING
  3. HUMULIN 70/30 [Suspect]
     Active Substance: INSULIN HUMAN
     Dosage: 25 U, EACH MORNING
  4. VITAMINS [Concomitant]
     Active Substance: VITAMINS
     Dosage: UNK, DAILY (1/D)

REACTIONS (4)
  - Fear [Unknown]
  - Drug dose omission [Unknown]
  - Muscle tightness [Not Recovered/Not Resolved]
  - Skin exfoliation [Recovered/Resolved]

NARRATIVE: CASE EVENT DATE: 20100730
